FAERS Safety Report 6739035-2 (Version None)
Quarter: 2010Q2

REPORT INFORMATION
  Report Type: 
  Country: None (occurrence: None)
  Receive Date: 20100524
  Receipt Date: 20100524
  Transmission Date: 20101027
  Serious: Yes (Other)
  Sender: FDA-Public Use
  Company Number: None

PATIENT

DRUGS (1)
  1. LITTLE NOSES 0.125 LITTLE REMEDIES [Suspect]
     Indication: NASAL CONGESTION
     Dosage: 2 OR 3 DROPS Q 4 HOURS NASAL
     Route: 045

REACTIONS (2)
  - INTERCEPTED MEDICATION ERROR [None]
  - PRODUCT LABEL CONFUSION [None]
